FAERS Safety Report 13241102 (Version 4)
Quarter: 2018Q1

REPORT INFORMATION
  Report Type: Spontaneous
  Country: US (occurrence: US)
  Receive Date: 20170216
  Receipt Date: 20180309
  Transmission Date: 20180508
  Serious: Yes (Hospitalization)
  Sender: FDA-Public Use
  Company Number: US-JNJFOC-20170214509

PATIENT
  Age: 74 Year
  Sex: Female

DRUGS (21)
  1. ZANTAC [Concomitant]
     Active Substance: RANITIDINE HYDROCHLORIDE
     Dosage: MORNING AND NIGHT
     Route: 065
  2. PROTONIX [Concomitant]
     Active Substance: PANTOPRAZOLE SODIUM
     Dosage: MORNING
     Route: 065
  3. ZESTRIL [Concomitant]
     Active Substance: LISINOPRIL
     Dosage: EVENING
     Route: 065
  4. NITROSTAT [Concomitant]
     Active Substance: NITROGLYCERIN
     Dosage: ONE TABLET UNDER TONGUE EVERY 5 MINUTES AS NEEDED
     Route: 060
  5. ELMIRON [Suspect]
     Active Substance: PENTOSAN POLYSULFATE SODIUM
     Indication: CYSTITIS INTERSTITIAL
     Dosage: MORNING, AFTERNOON AND NIGHT
     Route: 065
  6. PHENAZOPYRIDINE HYDROCHLORIDE. [Concomitant]
     Active Substance: PHENAZOPYRIDINE HYDROCHLORIDE
     Route: 065
  7. ZYRTEC [Concomitant]
     Active Substance: CETIRIZINE HYDROCHLORIDE
     Route: 065
  8. VITAMIN D3 [Concomitant]
     Active Substance: CHOLECALCIFEROL
     Dosage: IN MORNING
     Route: 065
  9. ABILIFY [Concomitant]
     Active Substance: ARIPIPRAZOLE
     Dosage: HALF OF 5 MG TABLET AT NIGHT
     Route: 065
  10. PLAVIX [Concomitant]
     Active Substance: CLOPIDOGREL BISULFATE
     Dosage: MORNING
     Route: 065
  11. XANAX [Concomitant]
     Active Substance: ALPRAZOLAM
     Indication: ANXIETY
     Dosage: IN EVENING MORNING AND NIGHT
     Route: 065
  12. MIRALAX [Concomitant]
     Active Substance: POLYETHYLENE GLYCOL 3350
     Dosage: MORNING, TAKE 17 GM IN 8 OUNCES OF WATER OR JUICE
     Route: 065
  13. ULTRAM [Concomitant]
     Active Substance: TRAMADOL HYDROCHLORIDE
     Dosage: TWO TABLETS EVERY SIX HOURS AS NEEDED
     Route: 065
  14. D-ALPHA TOCOPHERYL ACETATE [Concomitant]
     Dosage: MORNING
     Route: 065
  15. VITAMIN C [Concomitant]
     Active Substance: ASCORBIC ACID
     Dosage: MORNING
     Route: 065
  16. APIXABAN [Concomitant]
     Active Substance: APIXABAN
     Dosage: MORNING AND NIGHT
     Route: 065
  17. TOPROL XL [Concomitant]
     Active Substance: METOPROLOL SUCCINATE
     Dosage: MORNING AND NIGHT
     Route: 065
  18. MELATONIN [Concomitant]
     Active Substance: MELATONIN
     Route: 065
  19. CELEXA [Concomitant]
     Active Substance: CITALOPRAM HYDROBROMIDE
     Dosage: STRENGTH: 20 MG, MORNING
     Route: 065
  20. LIPITOR [Concomitant]
     Active Substance: ATORVASTATIN CALCIUM
     Dosage: AT BEDTIME
     Route: 065
  21. DESYREL [Concomitant]
     Active Substance: TRAZODONE HYDROCHLORIDE
     Route: 065

REACTIONS (1)
  - Hospitalisation [Unknown]

NARRATIVE: CASE EVENT DATE: 20161226
